FAERS Safety Report 13695392 (Version 1)
Quarter: 2017Q2

REPORT INFORMATION
  Report Type: Spontaneous
  Country: US (occurrence: US)
  Receive Date: 20170627
  Receipt Date: 20170627
  Transmission Date: 20170830
  Serious: No
  Sender: FDA-Public Use
  Company Number: US-ALLERGAN-1664678US

PATIENT
  Age: 40 Year
  Sex: Female

DRUGS (2)
  1. ESTROGEN [Concomitant]
     Active Substance: ESTROGENS
     Indication: PRODUCT USED FOR UNKNOWN INDICATION
     Dosage: UNK
  2. CRINONE [Suspect]
     Active Substance: PROGESTERONE
     Indication: ABORTION SPONTANEOUS
     Dosage: UNK, BID
     Route: 061
     Dates: start: 201607, end: 20160803

REACTIONS (5)
  - Dizziness [Recovered/Resolved]
  - Feeling abnormal [Recovered/Resolved]
  - Nausea [Recovered/Resolved]
  - Pregnancy test negative [Recovered/Resolved]
  - Breast discomfort [Recovered/Resolved]

NARRATIVE: CASE EVENT DATE: 201607
